FAERS Safety Report 6626681-X (Version None)
Quarter: 2010Q1

REPORT INFORMATION
  Report Type: 
  Country: None (occurrence: None)
  Receive Date: 20100308
  Receipt Date: 20100203
  Transmission Date: 20100710
  Serious: Yes (Hospitalization, Other)
  Sender: FDA-Public Use
  Company Number: 427518

PATIENT
  Age: 68 Year
  Sex: Female

DRUGS (12)
  1. FENTANYL [Suspect]
     Indication: DRUG USE FOR UNKNOWN INDICATION
     Dates: start: 20090721
  2. MIDAZOLAM HCL [Suspect]
     Indication: DRUG USE FOR UNKNOWN INDICATION
     Dates: start: 20090721
  3. PROPOFOL [Suspect]
     Indication: DRUG USE FOR UNKNOWN INDICATION
     Dates: start: 20090721
  4. INVESTIGATIONAL DRUG [Suspect]
     Indication: TRANSITIONAL CELL CARCINOMA
     Dosage: 20 MG, 1 WEEK; INTRAVENOUS
     Route: 042
     Dates: start: 20090527
  5. INVESTIGATIONAL DRUG [Suspect]
     Indication: TRANSITIONAL CELL CARCINOMA
     Dosage: 20MG (1 WEEK), INTRAVENOUS; 25 MG (1 WEEK); INTRAVENOUS
     Route: 042
     Dates: start: 20090128, end: 20090520
  6. INVESTIGATIONAL DRUG [Suspect]
     Indication: TRANSITIONAL CELL CARCINOMA
     Dosage: 20MG (1 WEEK), INTRAVENOUS; 25 MG (1 WEEK); INTRAVENOUS
     Route: 042
     Dates: start: 20090527
  7. GENTAMICIN [Concomitant]
  8. IBUPROFEN [Concomitant]
  9. OMEPRAZOLE [Concomitant]
  10. TRIMETHOPRIM [Concomitant]
  11. ONDANSETRON [Concomitant]
  12. PIRITON [Concomitant]

REACTIONS (8)
  - BLOOD ALBUMIN DECREASED [None]
  - BLOOD CALCIUM DECREASED [None]
  - BLOOD CREATININE DECREASED [None]
  - HYDRONEPHROSIS [None]
  - INFUSION SITE PAIN [None]
  - NEUTROPENIC SEPSIS [None]
  - PULMONARY EMBOLISM [None]
  - VOMITING [None]
